FAERS Safety Report 25452164 (Version 1)
Quarter: 2025Q2

REPORT INFORMATION
  Report Type: Report from Study
  Country: JP (occurrence: JP)
  Receive Date: 20250618
  Receipt Date: 20250618
  Transmission Date: 20250716
  Serious: Yes (Life-Threatening)
  Sender: PFIZER
  Company Number: JP-PFIZER INC-PV202400126468

PATIENT
  Age: 8 Decade
  Sex: Female

DRUGS (1)
  1. ELRANATAMAB [Suspect]
     Active Substance: ELRANATAMAB
     Dates: start: 202409

REACTIONS (2)
  - Lung infiltration [Recovering/Resolving]
  - Pyrexia [Recovering/Resolving]

NARRATIVE: CASE EVENT DATE: 20240901
